FAERS Safety Report 9764532 (Version 1)
Quarter: 2013Q4

REPORT INFORMATION
  Report Type: Spontaneous
  Country: FR (occurrence: FR)
  Receive Date: 20131217
  Receipt Date: 20131217
  Transmission Date: 20140711
  Serious: Yes (Other)
  Sender: FDA-Public Use
  Company Number: FR-ROCHE-1315716

PATIENT
  Sex: 0

DRUGS (1)
  1. ROACTEMRA [Suspect]
     Indication: RHEUMATOID ARTHRITIS
     Route: 065

REACTIONS (24)
  - Hepatocellular injury [Unknown]
  - Neutropenia [Unknown]
  - Thrombocytopenia [Unknown]
  - Arteriospasm coronary [Unknown]
  - Abdominal pain upper [Unknown]
  - Dyspnoea [Unknown]
  - Erysipelas [Unknown]
  - Motor dysfunction [Unknown]
  - Headache [Unknown]
  - Nausea [Unknown]
  - Vomiting [Unknown]
  - Acute coronary syndrome [Unknown]
  - Muscle spasms [Unknown]
  - Asthenia [Unknown]
  - Decreased appetite [Unknown]
  - Dyslipidaemia [Unknown]
  - Infusion related reaction [Unknown]
  - Infection [Unknown]
  - Dyspepsia [Unknown]
  - Hypertriglyceridaemia [Unknown]
  - Blood cholesterol increased [Unknown]
  - Dizziness [Unknown]
  - Blood pressure systolic decreased [Unknown]
  - Diarrhoea [Unknown]
